FAERS Safety Report 25512667 (Version 1)
Quarter: 2025Q3

REPORT INFORMATION
  Report Type: Spontaneous
  Country: US (occurrence: US)
  Receive Date: 20250703
  Receipt Date: 20250703
  Transmission Date: 20251021
  Serious: No
  Sender: RADIUS PHARM
  Company Number: US-RADIUS HEALTH INC.-2024US008337

PATIENT
  Sex: Female

DRUGS (1)
  1. TYMLOS [Suspect]
     Active Substance: ABALOPARATIDE
     Indication: Osteoporosis
     Route: 058
     Dates: start: 202312

REACTIONS (10)
  - Injection site bruising [Unknown]
  - Bone pain [Unknown]
  - Pain in jaw [Not Recovered/Not Resolved]
  - Inflammation [Unknown]
  - Pain [Unknown]
  - Swelling [Unknown]
  - Myalgia [Unknown]
  - Injection site injury [Unknown]
  - Bone loss [Not Recovered/Not Resolved]
  - Drug ineffective [Not Recovered/Not Resolved]
